FAERS Safety Report 20561708 (Version 1)
Quarter: 2022Q1

REPORT INFORMATION
  Report Type: Spontaneous
  Country: TW (occurrence: TW)
  Receive Date: 20220307
  Receipt Date: 20220307
  Transmission Date: 20220424
  Serious: Yes (Other)
  Sender: FDA-Public Use
  Company Number: TW-OTSUKA-2022_010284

PATIENT
  Age: 65 Year
  Sex: Female

DRUGS (1)
  1. TOLVAPTAN [Suspect]
     Active Substance: TOLVAPTAN
     Indication: Congenital cystic kidney disease
     Dosage: 30 MG, QD
     Route: 048
     Dates: start: 202002, end: 202202

REACTIONS (3)
  - End stage renal disease [Unknown]
  - Glomerular filtration rate decreased [Unknown]
  - Underdose [Unknown]

NARRATIVE: CASE EVENT DATE: 20200201
